FAERS Safety Report 6298379-1 (Version None)
Quarter: 2009Q3

REPORT INFORMATION
  Report Type: 
  Country: None (occurrence: None)
  Receive Date: 20090805
  Receipt Date: 20090720
  Transmission Date: 20100115
  Serious: Yes (Hospitalization)
  Sender: FDA-Public Use
  Company Number: GB-ELI_LILLY_AND_COMPANY-GB200907004285

PATIENT
  Sex: Female

DRUGS (2)
  1. ZYPREXA [Suspect]
     Indication: DEPRESSION
     Dates: start: 20060101
  2. ZYPREXA [Suspect]
     Dates: start: 20080101

REACTIONS (7)
  - FEELING ABNORMAL [None]
  - HOSPITALISATION [None]
  - MEMORY IMPAIRMENT [None]
  - MENTAL IMPAIRMENT [None]
  - MUSCLE DISORDER [None]
  - OFF LABEL USE [None]
  - TREATMENT NONCOMPLIANCE [None]
